FAERS Safety Report 9100912 (Version 3)
Quarter: 2013Q1

REPORT INFORMATION
  Report Type: Spontaneous
  Country: GB (occurrence: GB)
  Receive Date: 20130215
  Receipt Date: 20130318
  Transmission Date: 20140127
  Serious: Yes (Other)
  Sender: FDA-Public Use
  Company Number: PHFR2013GB001196

PATIENT
  Sex: Female

DRUGS (3)
  1. TEGRETOL [Suspect]
     Dosage: 800 MG, UNK
     Route: 048
  2. FOLIC ACID [Concomitant]
     Dosage: 5 MG, DAILY
  3. BETNOVATE [Concomitant]
     Route: 062

REACTIONS (1)
  - Convulsion [Unknown]
